FAERS Safety Report 22063033 (Version 2)
Quarter: 2023Q1

REPORT INFORMATION
  Report Type: Report from Study
  Country: IT (occurrence: IT)
  Receive Date: 20230306
  Receipt Date: 20230326
  Transmission Date: 20230418
  Serious: No
  Sender: FDA-Public Use
  Company Number: IT-UCBSA-2023010047

PATIENT
  Sex: Male

DRUGS (1)
  1. NEUPRO [Suspect]
     Active Substance: ROTIGOTINE
     Indication: Product used for unknown indication
     Dosage: 2 MILLIGRAM, ONCE DAILY (QD)
     Route: 062
     Dates: start: 202212

REACTIONS (3)
  - Intentional dose omission [Unknown]
  - Product adhesion issue [Unknown]
  - Product use issue [Unknown]
